FAERS Safety Report 20008155 (Version 4)
Quarter: 2022Q3

REPORT INFORMATION
  Report Type: Report from Study
  Country: FR (occurrence: FR)
  Receive Date: 20211029
  Receipt Date: 20220907
  Transmission Date: 20221026
  Serious: Yes (Death, Life-Threatening, Congenital Anomaly, Other)
  Sender: FDA-Public Use
  Company Number: FR-MYLANLABS-2021M1073887

PATIENT
  Age: 4 Month
  Sex: Male
  Weight: 2.1 kg

DRUGS (3)
  1. DARUNAVIR [Suspect]
     Active Substance: DARUNAVIR
     Indication: HIV infection
     Dosage: UNK, ONE COURSE
     Route: 064
  2. RITONAVIR [Suspect]
     Active Substance: RITONAVIR
     Indication: HIV infection
     Dosage: UNK, ONE COURSE
     Route: 064
  3. EMTRICITABINE\TENOFOVIR [Suspect]
     Active Substance: EMTRICITABINE\TENOFOVIR
     Indication: HIV infection
     Dosage: UNK, ONE COURSE
     Route: 064

REACTIONS (11)
  - Weaning failure [Fatal]
  - Heart disease congenital [Unknown]
  - Trisomy 21 [Unknown]
  - Pulmonary hypertension [Not Recovered/Not Resolved]
  - Ventricular hypoplasia [Unknown]
  - Hypoplastic left heart syndrome [Unknown]
  - Atrioventricular septal defect [Unknown]
  - Gene mutation [Not Recovered/Not Resolved]
  - Foetal exposure during pregnancy [Recovered/Resolved]
  - Coarctation of the aorta [Unknown]
  - Premature baby [Not Recovered/Not Resolved]
